FAERS Safety Report 4966796-5 (Version None)
Quarter: 2006Q2

REPORT INFORMATION
  Report Type: 
  Country: None (occurrence: None)
  Receive Date: 20060407
  Receipt Date: 20051017
  Transmission Date: 20061013
  Serious: Yes (Death)
  Sender: FDA-Public Use
  Company Number: US-MERCK-0510USA07708

PATIENT
  Age: 87 Year
  Sex: Female
  Weight: 62 kg

DRUGS (12)
  1. VIOXX [Suspect]
     Indication: ARTHRALGIA
     Route: 048
     Dates: start: 20030218, end: 20031107
  2. THEOPHYLLINE [Concomitant]
     Route: 065
  3. LANOXIN [Concomitant]
     Route: 065
  4. ZOLOFT [Concomitant]
     Route: 065
  5. LASIX [Concomitant]
     Route: 065
  6. CALCIUM (UNSPECIFIED) [Concomitant]
     Route: 065
  7. VITAMINS (UNSPECIFIED) [Concomitant]
     Route: 065
  8. K-DUR 10 [Concomitant]
     Route: 065
  9. LISINOPRIL [Concomitant]
     Route: 065
  10. TRAMADOLOR [Concomitant]
     Route: 065
  11. REMERON [Concomitant]
     Route: 065
  12. DIFLUCAN [Concomitant]
     Route: 065

REACTIONS (2)
  - CARDIO-RESPIRATORY ARREST [None]
  - MYOCARDIAL INFARCTION [None]
